FAERS Safety Report 8811657 (Version 1)
Quarter: 2012Q4

REPORT INFORMATION
  Report Type: 
  Country: US (occurrence: US)
  Receive Date: 20120927
  Receipt Date: 20120927
  Transmission Date: 20130627
  Serious: No
  Sender: FDA-Public Use
  Company Number: US-MUTUAL PHARMACEUTICAL COMPANY, INC.-BCTM20110052

PATIENT
  Sex: Female

DRUGS (1)
  1. BACTRIM TABLETS [Suspect]
     Indication: BLADDER INFECTION
     Route: 065

REACTIONS (1)
  - Drug ineffective [None]
